FAERS Safety Report 10418630 (Version 1)
Quarter: 2014Q2

REPORT INFORMATION
  Report Type: Spontaneous
  Country: US (occurrence: None)
  Receive Date: 20140613
  Receipt Date: 20140613
  Transmission Date: 20141212
  Serious: No
  Sender: FDA-Public Use
  Company Number: 1396737

PATIENT
  Sex: Male

DRUGS (1)
  1. ZELBORAF (VEMURAFENIB) [Suspect]
     Indication: METASTATIC MALIGNANT MELANOMA

REACTIONS (5)
  - Flushing [None]
  - Pruritus [None]
  - Skin swelling [None]
  - Skin exfoliation [None]
  - Dry skin [None]
